FAERS Safety Report 8026086-3 (Version None)
Quarter: 2012Q1

REPORT INFORMATION
  Report Type: 
  Country: None (occurrence: None)
  Receive Date: 20120105
  Receipt Date: 20110525
  Transmission Date: 20120608
  Serious: No
  Sender: FDA-Public Use
  Company Number: US-ABBOTT-11P-163-0729016-00

PATIENT
  Age: 43 Year
  Sex: Female
  Weight: 56.296 kg

DRUGS (4)
  1. BLOOD PRESSURE MEDICATION [Concomitant]
     Indication: HYPERTENSION
  2. CLONOZAPAM [Concomitant]
     Indication: DEPRESSION
     Dosage: 0.5MG
  3. SYNTHROID [Suspect]
     Indication: RADIOTHERAPY TO THYROID
  4. SYNTHROID [Suspect]
     Indication: HYPOTHYROIDISM
     Dosage: IN THE MORNING
     Route: 048
     Dates: start: 20101214

REACTIONS (5)
  - HEADACHE [None]
  - DIZZINESS [None]
  - ALOPECIA [None]
  - HEART RATE IRREGULAR [None]
  - BLOOD GLUCOSE DECREASED [None]
